FAERS Safety Report 7707449-X (Version None)
Quarter: 2011Q3

REPORT INFORMATION
  Report Type: 
  Country: None (occurrence: None)
  Receive Date: 20110824
  Receipt Date: 20110812
  Transmission Date: 20111222
  Serious: Yes (Death)
  Sender: FDA-Public Use
  Company Number: CA-ELI_LILLY_AND_COMPANY-CA201108004224

PATIENT
  Sex: Male

DRUGS (10)
  1. ZYPREXA [Suspect]
     Dosage: 15 MG, UNK
  2. LORAZEPAM [Concomitant]
  3. NICODERM [Concomitant]
  4. PROPRANOLOL [Concomitant]
  5. ZYPREXA [Suspect]
     Dosage: 2.5 MG, UNK
  6. PROCYCLIDINE HYDROCHLORIDE 2MG TAB [Concomitant]
  7. ZYPREXA [Suspect]
     Indication: SCHIZOPHRENIA
     Dosage: 10 MG, UNK
     Dates: start: 19991025
  8. NICORETTE [Concomitant]
  9. RANITIDIN HEXAL [Concomitant]
  10. ZYPREXA [Suspect]
     Dosage: 5 MG, UNK

REACTIONS (11)
  - DEATH [None]
  - HAEMATURIA [None]
  - FUNGAL SKIN INFECTION [None]
  - URINARY TRACT INFECTION [None]
  - BLOOD TRIGLYCERIDES INCREASED [None]
  - DIABETES MELLITUS [None]
  - HYPERTENSION [None]
  - PRESYNCOPE [None]
  - PALPITATIONS [None]
  - BLOOD CHOLESTEROL INCREASED [None]
  - CHEST PAIN [None]
